FAERS Safety Report 13527540 (Version 3)
Quarter: 2017Q3

REPORT INFORMATION
  Report Type: Spontaneous
  Country: GB (occurrence: GB)
  Receive Date: 20170509
  Receipt Date: 20170726
  Transmission Date: 20171127
  Serious: Yes (Hospitalization, Other)
  Sender: FDA-Public Use
  Company Number: GB-GLAXOSMITHKLINE-GB2017067440

PATIENT
  Age: 48 Year
  Sex: Female

DRUGS (5)
  1. OMALIZUMAB. [Suspect]
     Active Substance: OMALIZUMAB
     Indication: CHRONIC SPONTANEOUS URTICARIA
     Dosage: 300 MG, PER 4 WEEKS
     Route: 058
     Dates: start: 20141210
  2. FLUTICASONE PROPIONATE. [Suspect]
     Active Substance: FLUTICASONE PROPIONATE
     Indication: ASTHMA
     Dosage: 500 UG, UNK
     Route: 065
     Dates: start: 20140101
  3. OMALIZUMAB. [Suspect]
     Active Substance: OMALIZUMAB
     Indication: ANGIOEDEMA
  4. FLUTICASONE FUROATE [Suspect]
     Active Substance: FLUTICASONE FUROATE
     Indication: ASTHMA
     Dosage: 100 UG, QD
     Route: 065
     Dates: start: 20140101
  5. SALBUTAMOL [Suspect]
     Active Substance: ALBUTEROL
     Indication: ASTHMA
     Dosage: 200 UG, UNK
     Route: 065
     Dates: start: 19800101

REACTIONS (10)
  - Dyspnoea [Recovered/Resolved]
  - Dyspnoea [Unknown]
  - Product use in unapproved indication [Unknown]
  - Asthma [Recovered/Resolved]
  - Wheezing [Recovered/Resolved]
  - Rash [Unknown]
  - Cough [Recovered/Resolved]
  - Urticaria [Recovered/Resolved]
  - Face oedema [Unknown]
  - Anaphylactic reaction [Recovered/Resolved]

NARRATIVE: CASE EVENT DATE: 20170404
